FAERS Safety Report 13763673 (Version 1)
Quarter: 2017Q3

REPORT INFORMATION
  Report Type: Spontaneous
  Country: US (occurrence: US)
  Receive Date: 20170718
  Receipt Date: 20170718
  Transmission Date: 20171127
  Serious: No
  Sender: FDA-Public Use
  Company Number: GXBR2016US000681

PATIENT
  Sex: Male

DRUGS (1)
  1. DOUBLE ANTIBIOTIC OINTMENT [Suspect]
     Active Substance: UNSPECIFIED INGREDIENT
     Indication: FUNGAL INFECTION
     Dosage: UNK DF, UNK
     Route: 061
     Dates: end: 20160210

REACTIONS (2)
  - Fungal infection [Not Recovered/Not Resolved]
  - Product use in unapproved indication [Not Recovered/Not Resolved]
